FAERS Safety Report 10916398 (Version 3)
Quarter: 2015Q1

REPORT INFORMATION
  Report Type: Spontaneous
  Country: BR (occurrence: BR)
  Receive Date: 20150316
  Receipt Date: 20150327
  Transmission Date: 20150721
  Serious: Yes (Other)
  Sender: FDA-Public Use
  Company Number: BR-PFIZER INC-2015092170

PATIENT
  Age: 50 Year
  Sex: Female

DRUGS (4)
  1. NIQUITIN [Concomitant]
     Active Substance: NICOTINE
     Dosage: 2 PATCHES (21 MG), DURING 30 DAYS
     Dates: start: 20141022, end: 201411
  2. CHAMPIX [Suspect]
     Active Substance: VARENICLINE TARTRATE
     Indication: SMOKING CESSATION THERAPY
     Dosage: 0.5 AND 1.0 MG, FOLLOWING THE PRODUCT INDICATIONS
     Dates: start: 20141022, end: 201412
  3. FORASEQ [Concomitant]
     Active Substance: BUDESONIDE\FORMOTEROL FUMARATE
     Indication: CHRONIC OBSTRUCTIVE PULMONARY DISEASE
     Dosage: UNK
  4. NIQUITIN [Concomitant]
     Active Substance: NICOTINE
     Dosage: 2 PATCHES (14 MG), DURING 30 DAYS
     Dates: start: 20141110, end: 201412

REACTIONS (1)
  - Road traffic accident [Recovered/Resolved]

NARRATIVE: CASE EVENT DATE: 201412
